FAERS Safety Report 17865393 (Version 1)
Quarter: 2020Q2

REPORT INFORMATION
  Report Type: Spontaneous
  Country: PT (occurrence: PT)
  Receive Date: 20200605
  Receipt Date: 20200605
  Transmission Date: 20200714
  Serious: Yes (Hospitalization, Other)
  Sender: FDA-Public Use
  Company Number: PT-TEVA-2020-PT-1244903

PATIENT
  Age: 76 Year
  Sex: Female

DRUGS (4)
  1. MAGNESIUM METAMIZOLE [Interacting]
     Active Substance: METAMIZOLE MAGNESIUM
     Indication: PAIN
     Route: 065
  2. FLUCLOXACILLIN [Concomitant]
     Active Substance: FLUCLOXACILLIN
     Route: 065
  3. METHOTREXATE. [Suspect]
     Active Substance: METHOTREXATE
     Indication: RHEUMATOID ARTHRITIS
     Dosage: 7.5 MG WEEKLY, RESTARTED ON THE 14TH DAY OF HOSPITALIZATION
     Route: 065
  4. SULFAMETHOXAZOLE-TRIMETHOPRIM [Interacting]
     Active Substance: SULFAMETHOXAZOLE\TRIMETHOPRIM
     Indication: URINARY TRACT INFECTION
     Route: 065

REACTIONS (5)
  - Pancytopenia [Recovered/Resolved]
  - Toxicity to various agents [Unknown]
  - Drug interaction [Unknown]
  - Renal impairment [Unknown]
  - Mouth ulceration [Unknown]
